FAERS Safety Report 17029469 (Version 1)
Quarter: 2019Q4

REPORT INFORMATION
  Report Type: Spontaneous
  Country: US (occurrence: US)
  Receive Date: 20191114
  Receipt Date: 20191114
  Transmission Date: 20200122
  Serious: No
  Sender: FDA-Public Use
  Company Number: US-TEVA-2019-US-1135406

PATIENT
  Sex: Female

DRUGS (2)
  1. CLONIDINE TDS [Suspect]
     Active Substance: CLONIDINE
     Dosage: 0.1 MG WEEKLY
     Route: 062
  2. CLONIDINE. [Suspect]
     Active Substance: CLONIDINE
     Dosage: 0.1 MG DAILY
     Route: 065

REACTIONS (1)
  - Therapy change [Unknown]
